FAERS Safety Report 8332086-6 (Version None)
Quarter: 2012Q2

REPORT INFORMATION
  Report Type: 
  Country: None (occurrence: None)
  Receive Date: 20120502
  Receipt Date: 20120326
  Transmission Date: 20120825
  Serious: Yes (Other)
  Sender: FDA-Public Use
  Company Number: US-BAXTER-2012BAX000951

PATIENT
  Sex: Male

DRUGS (2)
  1. DIANEAL [Suspect]
     Route: 033
  2. DIANEAL [Suspect]
     Indication: PERITONEAL DIALYSIS
     Route: 033

REACTIONS (12)
  - PANCREATIC DISORDER [None]
  - DYSPEPSIA [None]
  - NAUSEA [None]
  - DEMENTIA [None]
  - GOUT [None]
  - SKIN CANCER [None]
  - HERNIA [None]
  - SWELLING [None]
  - LIVER DISORDER [None]
  - METAL POISONING [None]
  - MUSCULOSKELETAL PAIN [None]
  - BACK PAIN [None]
